FAERS Safety Report 8759211 (Version 2)
Quarter: 2012Q4

REPORT INFORMATION
  Report Type: 
  Country: FR (occurrence: FR)
  Receive Date: 20120829
  Receipt Date: 20121102
  Transmission Date: 20130627
  Serious: Yes (Hospitalization)
  Sender: FDA-Public Use
  Company Number: FR-ABBOTT-12P-056-0973626-00

PATIENT
  Age: 25 Year
  Sex: Male

DRUGS (8)
  1. DEPAKINE CHRONO TABLET, EXTENDED RELEASE [Suspect]
     Indication: PRODUCT USED FOR UNKNOWN INDICATION
     Route: 048
     Dates: start: 201107, end: 20120331
  2. DEPAKINE CHRONO TABLET, EXTENDED RELEASE [Interacting]
     Route: 048
     Dates: start: 20120320, end: 20120331
  3. INIPOMP [Interacting]
     Indication: PRODUCT USED FOR UNKNOWN INDICATION
     Dosage: Daily
     Route: 048
     Dates: start: 201201, end: 20120320
  4. TEMOZOLOMIDE [Interacting]
     Indication: PRODUCT USED FOR UNKNOWN INDICATION
     Dosage: Daily
     Route: 048
     Dates: start: 20120120, end: 20120124
  5. TEMOZOLOMIDE [Interacting]
     Route: 048
     Dates: start: 20120209, end: 20120310
  6. TEGRETOL [Concomitant]
     Indication: PRODUCT USED FOR UNKNOWN INDICATION
     Dates: start: 201111, end: 20120216
  7. ZYRTEC [Concomitant]
     Indication: PRODUCT USED FOR UNKNOWN INDICATION
  8. THERAPEUTIC RADIOPHARMACEUTICALS [Concomitant]
     Indication: PRODUCT USED FOR UNKNOWN INDICATION
     Dates: start: 20120209, end: 20120322

REACTIONS (5)
  - Drug interaction [Unknown]
  - Pancytopenia [Recovered/Resolved]
  - Thrombocytopenia [Unknown]
  - Agranulocytosis [Unknown]
  - Anaemia [Unknown]
